FAERS Safety Report 6618450-1 (Version None)
Quarter: 2010Q1

REPORT INFORMATION
  Report Type: 
  Country: None (occurrence: None)
  Receive Date: 20100308
  Receipt Date: 20100304
  Transmission Date: 20100710
  Serious: Yes (Death, Other)
  Sender: FDA-Public Use
  Company Number: JP-JNJFOC-20100208734

PATIENT
  Age: 37 Year
  Sex: Female

DRUGS (2)
  1. DUROTEP MT PATCH [Suspect]
     Indication: CANCER PAIN
     Route: 062
  2. MORPHINE HYDROCHLORIDE [Suspect]
     Indication: CANCER PAIN
     Route: 065

REACTIONS (2)
  - DYSKINESIA [None]
  - GASTRIC CANCER [None]
